FAERS Safety Report 5027174-6 (Version None)
Quarter: 2006Q2

REPORT INFORMATION
  Report Type: 
  Country: None (occurrence: None)
  Receive Date: 20060612
  Receipt Date: 20060530
  Transmission Date: 20061013
  Serious: Yes (Other)
  Sender: FDA-Public Use
  Company Number: 225778

PATIENT
  Sex: 0

DRUGS (1)
  1. AVASTIN [Suspect]
     Dosage: INTRAVITREAL

REACTIONS (2)
  - EYE INFLAMMATION [None]
  - PHARMACEUTICAL PRODUCT COMPLAINT [None]
